FAERS Safety Report 5853400-7 (Version None)
Quarter: 2008Q3

REPORT INFORMATION
  Report Type: 
  Country: None (occurrence: None)
  Receive Date: 20080820
  Receipt Date: 20080523
  Transmission Date: 20090109
  Serious: Yes (Hospitalization)
  Sender: FDA-Public Use
  Company Number: US023939

PATIENT
  Age: 69 Year
  Sex: Male
  Weight: 71 kg

DRUGS (4)
  1. TRISENOX [Suspect]
     Indication: MYELODYSPLASTIC SYNDROME
     Dosage: 19 MG QD INTRAVENOUS DRIP
     Route: 041
     Dates: start: 20080514, end: 20080518
  2. NORVASC [Concomitant]
  3. DAFLON [Concomitant]
  4. LEVOXACIN [Concomitant]

REACTIONS (4)
  - ENTEROCOCCAL INFECTION [None]
  - HYPERTHERMIA [None]
  - PNEUMONIA BACTERIAL [None]
  - SPUTUM CULTURE POSITIVE [None]
